FAERS Safety Report 14290290 (Version 1)
Quarter: 2017Q4

REPORT INFORMATION
  Report Type: Spontaneous
  Country: TW (occurrence: TW)
  Receive Date: 20171215
  Receipt Date: 20171215
  Transmission Date: 20180321
  Serious: Yes (Other)
  Sender: FDA-Public Use
  Company Number: TW-ASTELLAS-2017US052768

PATIENT
  Age: 61 Year
  Sex: Female

DRUGS (6)
  1. TACROLIMUS. [Suspect]
     Active Substance: TACROLIMUS
     Indication: RENAL TRANSPLANT
     Dosage: UNK, UNKNOWN FREQ.
     Route: 065
  2. TACROLIMUS. [Suspect]
     Active Substance: TACROLIMUS
     Route: 065
  3. TACROLIMUS. [Suspect]
     Active Substance: TACROLIMUS
     Route: 065
  4. MYCOPHENOLATE MOFETIL. [Concomitant]
     Active Substance: MYCOPHENOLATE MOFETIL
     Route: 065
  5. MYCOPHENOLATE MOFETIL. [Concomitant]
     Active Substance: MYCOPHENOLATE MOFETIL
     Indication: RENAL TRANSPLANT
     Dosage: UNK UNK, UNKNOWN FREQ.
     Route: 065
  6. PREDNISOLONE. [Concomitant]
     Active Substance: PREDNISOLONE
     Indication: RENAL TRANSPLANT
     Dosage: UNK UNK, UNKNOWN FREQ.
     Route: 065
     Dates: end: 200906

REACTIONS (6)
  - Vaginal haemorrhage [Unknown]
  - Bladder cancer recurrent [Unknown]
  - Rash maculo-papular [Recovered/Resolved]
  - Transitional cell carcinoma [Unknown]
  - Dysuria [Unknown]
  - Transitional cell carcinoma recurrent [Recovering/Resolving]

NARRATIVE: CASE EVENT DATE: 201607
